FAERS Safety Report 11645423 (Version 2)
Quarter: 2016Q1

REPORT INFORMATION
  Report Type: Spontaneous
  Country: FR (occurrence: FR)
  Receive Date: 20151020
  Receipt Date: 20160329
  Transmission Date: 20160525
  Serious: Yes (Hospitalization)
  Sender: FDA-Public Use
  Company Number: FR-CONCORDIA PHARMACEUTICALS INC.-CO-PL-FR-2015-310

PATIENT
  Age: 72 Year
  Sex: Female

DRUGS (9)
  1. PLAQUENIL [Suspect]
     Active Substance: HYDROXYCHLOROQUINE SULFATE
     Indication: RHEUMATOID ARTHRITIS
     Route: 048
     Dates: start: 20150827, end: 20150909
  2. CORTANCYL [Concomitant]
     Active Substance: PREDNISONE
  3. IMETH [Concomitant]
     Active Substance: METHOTREXATE SODIUM
     Dates: end: 20150907
  4. RILMENIDINE [Concomitant]
     Active Substance: RILMENIDINE
  5. CRESTOR [Concomitant]
     Active Substance: ROSUVASTATIN CALCIUM
  6. EUCREAS [Concomitant]
     Active Substance: METFORMIN HYDROCHLORIDE\VILDAGLIPTIN
  7. LOGIMAX [Concomitant]
     Active Substance: FELODIPINE\METOPROLOL SUCCINATE
  8. SPECIAFOLDINE [Concomitant]
     Active Substance: FOLIC ACID
  9. TELMISARTAN. [Concomitant]
     Active Substance: TELMISARTAN

REACTIONS (3)
  - Rash pustular [Recovering/Resolving]
  - Drug reaction with eosinophilia and systemic symptoms [Recovering/Resolving]
  - Hyperlipasaemia [Recovering/Resolving]

NARRATIVE: CASE EVENT DATE: 20150904
